FAERS Safety Report 14442903 (Version 1)
Quarter: 2018Q1

REPORT INFORMATION
  Report Type: Spontaneous
  Country: US (occurrence: US)
  Receive Date: 20180125
  Receipt Date: 20180125
  Transmission Date: 20180509
  Serious: No
  Sender: FDA-Public Use
  Company Number: US-ABBVIE-17K-163-2033562-00

PATIENT
  Sex: Female

DRUGS (3)
  1. HUMIRA [Suspect]
     Active Substance: ADALIMUMAB
     Indication: PRODUCT USED FOR UNKNOWN INDICATION
     Route: 058
  2. ENBREL [Suspect]
     Active Substance: ETANERCEPT
     Indication: PRODUCT USED FOR UNKNOWN INDICATION
     Route: 065
     Dates: start: 20161130, end: 201612
  3. ENBREL [Suspect]
     Active Substance: ETANERCEPT
     Route: 065
     Dates: start: 20170108, end: 201705

REACTIONS (4)
  - Intervertebral disc degeneration [Not Recovered/Not Resolved]
  - Back disorder [Unknown]
  - Intervertebral disc protrusion [Unknown]
  - Drug ineffective [Unknown]
